FAERS Safety Report 6138539-3 (Version None)
Quarter: 2009Q1

REPORT INFORMATION
  Report Type: 
  Country: None (occurrence: None)
  Receive Date: 20090327
  Receipt Date: 20090312
  Transmission Date: 20090719
  Serious: Yes (Hospitalization)
  Sender: FDA-Public Use
  Company Number: 2009183511

PATIENT
  Age: 76 Year
  Sex: Female

DRUGS (2)
  1. FRAGMIN [Suspect]
     Dosage: 1 DF, 1X/DAY, SUBCUTANEOUS
     Route: 058
     Dates: start: 20080604, end: 20080612
  2. ENOXAPARIN SODIUM [Concomitant]

REACTIONS (1)
  - PHLEBITIS [None]
